FAERS Safety Report 19928738 (Version 5)
Quarter: 2022Q2

REPORT INFORMATION
  Report Type: Report from Study
  Country: US (occurrence: US)
  Receive Date: 20211007
  Receipt Date: 20220408
  Transmission Date: 20220721
  Serious: Yes (Other)
  Sender: FDA-Public Use
  Company Number: US-ABBVIE-21K-163-4107526-00

PATIENT
  Sex: Male

DRUGS (6)
  1. HUMIRA [Interacting]
     Active Substance: ADALIMUMAB
     Indication: Ankylosing spondylitis
     Route: 058
  2. HUMIRA [Interacting]
     Active Substance: ADALIMUMAB
     Route: 058
  3. METOPROLOL [Suspect]
     Active Substance: METOPROLOL
     Indication: Product used for unknown indication
     Route: 065
  4. XARELTO [Suspect]
     Active Substance: RIVAROXABAN
     Indication: Product used for unknown indication
     Route: 065
  5. MODERNA COVID-19 VACCINE [Suspect]
     Active Substance: ELASOMERAN
     Indication: COVID-19 immunisation
     Dosage: FIRST DOSE
     Route: 030
     Dates: start: 20210201, end: 20210201
  6. MODERNA COVID-19 VACCINE [Suspect]
     Active Substance: ELASOMERAN
     Dosage: SECOND DOSE
     Route: 030
     Dates: start: 20210301, end: 20210301

REACTIONS (11)
  - Bradyarrhythmia [Recovering/Resolving]
  - Dizziness [Not Recovered/Not Resolved]
  - Muscle tightness [Unknown]
  - Rash [Recovering/Resolving]
  - Heart rate decreased [Unknown]
  - Musculoskeletal disorder [Unknown]
  - Fatigue [Unknown]
  - Drug interaction [Unknown]
  - Atrial fibrillation [Unknown]
  - Drug eruption [Unknown]
  - Nausea [Not Recovered/Not Resolved]

NARRATIVE: CASE EVENT DATE: 20210101
